FAERS Safety Report 18944673 (Version 1)
Quarter: 2021Q1

REPORT INFORMATION
  Report Type: Spontaneous
  Country: US (occurrence: US)
  Receive Date: 20210226
  Receipt Date: 20210226
  Transmission Date: 20210420
  Serious: No
  Sender: FDA-Public Use
  Company Number: None

PATIENT
  Weight: 19 kg

DRUGS (7)
  1. MESNA. [Suspect]
     Active Substance: MESNA
     Dates: end: 20201226
  2. CYCLOPHOSPHAMIDE. [Suspect]
     Active Substance: CYCLOPHOSPHAMIDE
     Dates: end: 20201226
  3. THIOTEPA. [Suspect]
     Active Substance: THIOTEPA
     Dates: end: 20201223
  4. CARBOPLATIN. [Suspect]
     Active Substance: CARBOPLATIN
     Dates: end: 20210215
  5. MELPHALAN. [Suspect]
     Active Substance: MELPHALAN
     Dates: end: 20210214
  6. ETOPOSIDE (VP?16) [Suspect]
     Active Substance: ETOPOSIDE
     Dates: end: 20210215
  7. G?CSF (FILGRASTIM, AMGEN) [Suspect]
     Active Substance: FILGRASTIM
     Dates: end: 20210223

REACTIONS (9)
  - Pyrexia [None]
  - Hypoxia [None]
  - Haematemesis [None]
  - Packed red blood cell transfusion [None]
  - Autologous haematopoietic stem cell transplant [None]
  - Hypotension [None]
  - Mucosal inflammation [None]
  - Gastrointestinal haemorrhage [None]
  - Respiratory tract haemorrhage [None]

NARRATIVE: CASE EVENT DATE: 20210221
